FAERS Safety Report 8027165-7 (Version None)
Quarter: 2012Q1

REPORT INFORMATION
  Report Type: 
  Country: None (occurrence: None)
  Receive Date: 20120104
  Receipt Date: 20111219
  Transmission Date: 20120608
  Serious: Yes (Other)
  Sender: FDA-Public Use
  Company Number: TPA2011A05793

PATIENT
  Age: 56 Year
  Sex: Male

DRUGS (3)
  1. ADENURIC (FEBUXOSTAT) [Suspect]
     Indication: GOUTY ARTHRITIS
     Dosage: 80 MG (80 MG, 1 IN 1 D)
     Route: 048
     Dates: end: 20110623
  2. COLCHIMAX (COLCHICINE, DICYCLOVERINE HYDROCHLORIDE) [Concomitant]
  3. CIPRALAN [Concomitant]

REACTIONS (5)
  - ALANINE AMINOTRANSFERASE INCREASED [None]
  - GAMMA-GLUTAMYLTRANSFERASE INCREASED [None]
  - ALCOHOL ABUSE [None]
  - ASPARTATE AMINOTRANSFERASE INCREASED [None]
  - HEPATOCELLULAR INJURY [None]
